FAERS Safety Report 12934454 (Version 4)
Quarter: 2017Q1

REPORT INFORMATION
  Report Type: Spontaneous
  Country: US (occurrence: US)
  Receive Date: 20161111
  Receipt Date: 20170103
  Transmission Date: 20170428
  Serious: Yes (Hospitalization, Other)
  Sender: FDA-Public Use
  Company Number: US-PFIZER INC-2016519669

PATIENT
  Age: 70 Year
  Sex: Female

DRUGS (2)
  1. SUTENT [Suspect]
     Active Substance: SUNITINIB MALATE
     Indication: METASTATIC RENAL CELL CARCINOMA
     Dosage: 25 MG, CYCLIC (28 DAYS ON/14 DAYS OFF, 4 WEEKS ON AND 2 WEEKS OFF)
     Dates: end: 20161117
  2. SUTENT [Suspect]
     Active Substance: SUNITINIB MALATE
     Indication: RENAL CANCER STAGE IV

REACTIONS (18)
  - Skin exfoliation [Unknown]
  - Joint swelling [Unknown]
  - Pain [Unknown]
  - Hyperaesthesia [Unknown]
  - Dysphagia [Unknown]
  - Gait disturbance [Unknown]
  - Stomatitis [Unknown]
  - Dry skin [Unknown]
  - Furuncle [Unknown]
  - Glossodynia [Unknown]
  - Cellulitis [Unknown]
  - Erythema [Unknown]
  - Mastication disorder [Unknown]
  - Burning sensation [Unknown]
  - Pharyngeal ulceration [Unknown]
  - Pain of skin [Unknown]
  - Peripheral swelling [Unknown]
  - Jaw disorder [Unknown]
